FAERS Safety Report 11507428 (Version 1)
Quarter: 2015Q3

REPORT INFORMATION
  Report Type: Spontaneous
  Country: US (occurrence: US)
  Receive Date: 20150903
  Receipt Date: 20150903
  Transmission Date: 20151125
  Serious: No
  Sender: FDA-Public Use
  Company Number: US-ELI_LILLY_AND_COMPANY-US200908001650

PATIENT
  Age: 51 Year
  Sex: Female

DRUGS (7)
  1. FLORINEF ACETATE [Concomitant]
     Active Substance: FLUDROCORTISONE ACETATE
  2. LIPITOR [Concomitant]
     Active Substance: ATORVASTATIN CALCIUM
  3. HUMALOG [Suspect]
     Active Substance: INSULIN LISPRO
     Dates: start: 1999
  4. HUMALOG [Suspect]
     Active Substance: INSULIN LISPRO
     Dates: start: 1999
  5. SYNTHROID [Concomitant]
     Active Substance: LEVOTHYROXINE SODIUM
  6. HUMALOG [Suspect]
     Active Substance: INSULIN LISPRO
     Dates: start: 1999
  7. FIXMYSKIN HEALING BALM VANILLA FRAGRANCE [Concomitant]
     Active Substance: HYDROCORTISONE

REACTIONS (9)
  - Feeling abnormal [Not Recovered/Not Resolved]
  - Drug ineffective [Not Recovered/Not Resolved]
  - Blood glucose increased [Not Recovered/Not Resolved]
  - Blood glucose decreased [Unknown]
  - Nervousness [Unknown]
  - Disorientation [Unknown]
  - Hunger [Unknown]
  - Poor quality drug administered [Not Recovered/Not Resolved]
  - Hyperhidrosis [Unknown]

NARRATIVE: CASE EVENT DATE: 200908
